FAERS Safety Report 8217644-1 (Version None)
Quarter: 2012Q1

REPORT INFORMATION
  Report Type: 
  Country: None (occurrence: None)
  Receive Date: 20120314
  Receipt Date: 20120228
  Transmission Date: 20120608
  Serious: No
  Sender: FDA-Public Use
  Company Number: TPG2012A00210

PATIENT
  Age: 58 Year
  Sex: Female

DRUGS (3)
  1. FLUTAMIDE [Suspect]
     Indication: DEPRESSION
     Dosage: 20 MG (20 MG, 1 IN 1 D) PER ORAL
     Route: 048
     Dates: start: 20080101, end: 20120101
  2. EZETIMIBE/SIMVASTATIN [Concomitant]
  3. PIOGLITAZONE HYDROCHLORIDE/METFORMIN HYDROCHLORIDE [Suspect]
     Indication: DIABETES MELLITUS
     Dosage: PIOGLITAZONE / METFORMIN 30/1700 MG PER ORAL
     Route: 048
     Dates: start: 20110801, end: 20120101

REACTIONS (3)
  - STRESS FRACTURE [None]
  - OSTEOPENIA [None]
  - FOOT FRACTURE [None]
